FAERS Safety Report 9825329 (Version 2)
Quarter: 2014Q1

REPORT INFORMATION
  Report Type: Spontaneous
  Country: US (occurrence: None)
  Receive Date: 20131028
  Receipt Date: 20140115
  Transmission Date: 20141002
  Serious: Yes (Other)
  Sender: FDA-Public Use
  Company Number: 2013US002491

PATIENT
  Age: 58 Year
  Sex: Female
  Weight: 45 kg

DRUGS (10)
  1. ICLUSIG [Suspect]
     Indication: CHRONIC MYELOID LEUKAEMIA
     Route: 048
     Dates: start: 20130725, end: 20130801
  2. MILK OF MAGNESIA [Concomitant]
  3. SPIRONOLACTONE (SPIRONOLACTONE) [Concomitant]
  4. LEVOTHYROXINE (LEVOTHYROXINE) [Concomitant]
  5. MULTIVITAMINS (VITAMINS NOS) [Concomitant]
  6. CALCIUM (CALCIUM) [Concomitant]
  7. PRILOSEC (OMEPRAZOLE) [Concomitant]
  8. CLONAZEPAM (CLONAZEPAM) (CLONAZEPAM) [Concomitant]
  9. VITAMIN C (VITAMIN C) [Concomitant]
  10. FUROSEMIDE (FUROSEMIDE) ONGOING [Concomitant]

REACTIONS (8)
  - Blood pressure increased [None]
  - Heart rate irregular [None]
  - Tachycardia [None]
  - Arthralgia [None]
  - Rash pruritic [None]
  - Herpes zoster [None]
  - Heart rate increased [None]
  - Decreased appetite [None]
